FAERS Safety Report 15948991 (Version 1)
Quarter: 2019Q1

REPORT INFORMATION
  Report Type: Spontaneous
  Country: IT (occurrence: IT)
  Receive Date: 20190211
  Receipt Date: 20190211
  Transmission Date: 20190417
  Serious: Yes (Other)
  Sender: FDA-Public Use
  Company Number: IT-GILEAD-2019-0389991

PATIENT
  Age: 80 Year
  Sex: Male
  Weight: 95 kg

DRUGS (6)
  1. RANOLAZINE. [Suspect]
     Active Substance: RANOLAZINE
     Indication: ANGINA PECTORIS
     Dosage: 750 MG, BID
     Route: 065
     Dates: start: 2009
  2. PROCORALAN [Concomitant]
     Active Substance: IVABRADINE
     Indication: ANGINA PECTORIS
     Dosage: 5 MG, BID
  3. TOTALIP [Concomitant]
     Active Substance: ATORVASTATIN
     Dosage: 40 MG, QD
  4. ASPIRIN. [Concomitant]
     Active Substance: ASPIRIN
  5. PRADIF T [Concomitant]
     Active Substance: TAMSULOSIN HYDROCHLORIDE
     Dosage: 0.4 MG, QD
  6. BIVIS [Concomitant]
     Active Substance: AMLODIPINE BESYLATE\OLMESARTAN MEDOXOMIL
     Indication: HYPERTENSION
     Dosage: HALF A TABLET A DAY AS NEEDED

REACTIONS (4)
  - Lacrimation increased [Not Recovered/Not Resolved]
  - Confusional state [Not Recovered/Not Resolved]
  - White blood cell count decreased [Not Recovered/Not Resolved]
  - Vision blurred [Not Recovered/Not Resolved]
